FAERS Safety Report 25258925 (Version 1)
Quarter: 2025Q2

REPORT INFORMATION
  Report Type: Spontaneous
  Country: US (occurrence: None)
  Receive Date: 20250430
  Receipt Date: 20250430
  Transmission Date: 20250716
  Serious: No
  Sender: FDA-CTU
  Company Number: None

PATIENT
  Sex: Male

DRUGS (1)
  1. SKYRIZI [Suspect]
     Active Substance: RISANKIZUMAB-RZAA
     Indication: Crohn^s disease
     Dosage: OTHER FREQUENCY : ONCE EVERY 4 WEEKS;?
     Route: 058
     Dates: start: 20240416

REACTIONS (3)
  - Wrong technique in device usage process [None]
  - Drug dose omission by device [None]
  - Product communication issue [None]
